FAERS Safety Report 13730431 (Version 1)
Quarter: 2017Q3

REPORT INFORMATION
  Report Type: Spontaneous
  Country: US (occurrence: US)
  Receive Date: 20170707
  Receipt Date: 20170707
  Transmission Date: 20171127
  Serious: Yes (Hospitalization)
  Sender: FDA-Public Use
  Company Number: US-JNJFOC-20170509159

PATIENT
  Age: 37 Year
  Sex: Male
  Weight: 153.13 kg

DRUGS (1)
  1. XARELTO [Suspect]
     Active Substance: RIVAROXABAN
     Indication: PULMONARY EMBOLISM
     Route: 048
     Dates: start: 20141107, end: 20150110

REACTIONS (2)
  - Gastrointestinal haemorrhage [Recovered/Resolved]
  - Renal haemorrhage [Unknown]

NARRATIVE: CASE EVENT DATE: 20150104
